FAERS Safety Report 8247158-4 (Version None)
Quarter: 2012Q1

REPORT INFORMATION
  Report Type: 
  Country: None (occurrence: None)
  Receive Date: 20120330
  Receipt Date: 20120321
  Transmission Date: 20120608
  Serious: Yes (Hospitalization)
  Sender: FDA-Public Use
  Company Number: US-JNJFOC-20120311288

PATIENT
  Sex: Male
  Weight: 29.7 kg

DRUGS (4)
  1. REMICADE [Suspect]
     Indication: INFLAMMATORY BOWEL DISEASE
     Route: 042
     Dates: start: 20050921
  2. HUMIRA [Concomitant]
     Dates: start: 20080319
  3. OXYCODONE/ACETAMINOPHEN [Concomitant]
  4. FAMOTIDINE [Concomitant]

REACTIONS (3)
  - COLECTOMY TOTAL [None]
  - DIVERTICULECTOMY [None]
  - ILEOSTOMY [None]
